FAERS Safety Report 18644395 (Version 2)
Quarter: 2020Q4

REPORT INFORMATION
  Report Type: Spontaneous
  Country: KR (occurrence: KR)
  Receive Date: 20201221
  Receipt Date: 20201222
  Transmission Date: 20210114
  Serious: Yes (Death, Hospitalization)
  Sender: FDA-Public Use
  Company Number: KR-CELGENEUS-KOR-20201205680

PATIENT
  Age: 67 Year
  Sex: Female
  Weight: 61 kg

DRUGS (1)
  1. VIDAZA [Suspect]
     Active Substance: AZACITIDINE
     Indication: PRODUCT USED FOR UNKNOWN INDICATION
     Route: 058
     Dates: start: 20071120, end: 20080318

REACTIONS (8)
  - Hepatic failure [Fatal]
  - Rash [Fatal]
  - Serum ferritin increased [Fatal]
  - Acute febrile neutrophilic dermatosis [Fatal]
  - Subarachnoid haemorrhage [Fatal]
  - Cerebral haemorrhage [Fatal]
  - Loss of consciousness [Fatal]
  - Platelet count decreased [Fatal]

NARRATIVE: CASE EVENT DATE: 20080616
